FAERS Safety Report 18342504 (Version 3)
Quarter: 2020Q4

REPORT INFORMATION
  Report Type: Other
  Country: NZ (occurrence: NZ)
  Receive Date: 20201005
  Receipt Date: 20201021
  Transmission Date: 20210113
  Serious: Yes (Other)
  Sender: FDA-Public Use
  Company Number: NZ-ROCHE-2684889

PATIENT
  Age: 58 Year
  Sex: Male

DRUGS (2)
  1. OCRELIZUMAB. [Suspect]
     Active Substance: OCRELIZUMAB
     Indication: PRIMARY PROGRESSIVE MULTIPLE SCLEROSIS
     Dosage: THERAPY STOP DATE: 07/SEP/2020
     Route: 042
     Dates: start: 20180124, end: 20200227
  2. PROMETHAZINE [Concomitant]
     Active Substance: PROMETHAZINE HYDROCHLORIDE
     Indication: HYPERSENSITIVITY
     Route: 048
     Dates: start: 20200320

REACTIONS (10)
  - Urticaria [Recovered/Resolved]
  - Hypotension [Unknown]
  - Neuralgia [Unknown]
  - Skin infection [Unknown]
  - Tachycardia [Unknown]
  - Bacterial infection [Unknown]
  - Asthenia [Unknown]
  - Gastrooesophageal reflux disease [Unknown]
  - White blood cell count increased [Unknown]
  - Fall [Unknown]

NARRATIVE: CASE EVENT DATE: 202007
